FAERS Safety Report 7947245-1 (Version None)
Quarter: 2011Q4

REPORT INFORMATION
  Report Type: 
  Country: None (occurrence: None)
  Receive Date: 20111129
  Receipt Date: 20111115
  Transmission Date: 20120403
  Serious: Yes (Other)
  Sender: FDA-Public Use
  Company Number: US-ASTRAZENECA-2011SE56914

PATIENT
  Age: 55 Year
  Sex: Male

DRUGS (3)
  1. NEXIUM [Suspect]
     Route: 048
  2. SYMBICORT [Suspect]
     Route: 055
  3. PRILOSEC [Suspect]
     Route: 048

REACTIONS (9)
  - BACK DISORDER [None]
  - DYSPEPSIA [None]
  - FEELING ABNORMAL [None]
  - DYSPNOEA [None]
  - BARRETT'S OESOPHAGUS [None]
  - GASTROOESOPHAGEAL REFLUX DISEASE [None]
  - DRUG DOSE OMISSION [None]
  - REGURGITATION [None]
  - DRUG INEFFECTIVE [None]
